FAERS Safety Report 13726209 (Version 1)
Quarter: 2017Q3

REPORT INFORMATION
  Report Type: Spontaneous
  Country: MX (occurrence: MX)
  Receive Date: 20170706
  Receipt Date: 20170706
  Transmission Date: 20171127
  Serious: Yes (Other)
  Sender: FDA-Public Use
  Company Number: MX-PFIZER INC-2017292200

PATIENT
  Age: 78 Year
  Sex: Female

DRUGS (2)
  1. TAFIL [Suspect]
     Active Substance: ALPRAZOLAM
     Dosage: UNK
  2. ACTIVENT [Concomitant]
     Dosage: UNK

REACTIONS (1)
  - Blindness [Not Recovered/Not Resolved]
